FAERS Safety Report 15384613 (Version 1)
Quarter: 2018Q3

REPORT INFORMATION
  Report Type: Spontaneous
  Country: US (occurrence: US)
  Receive Date: 20180907
  Receipt Date: 20180907
  Transmission Date: 20181010
  Serious: No
  Sender: FDA-Public Use
  Company Number: None

PATIENT
  Age: 59 Week
  Sex: Female
  Weight: 57.6 kg

DRUGS (3)
  1. MULTIPLE VITAMIN [Concomitant]
     Active Substance: VITAMINS
  2. LEVOTHROXINE [Concomitant]
     Active Substance: LEVOTHYROXINE
  3. DEXTROAMPHET SACCHARAT, AMPHET ASPARTATE, DEXTROAMPHET SULFATE AND AMPHET SULFAT [Suspect]
     Active Substance: AMPHETAMINE ASPARTATE\AMPHETAMINE SULFATE\DEXTROAMPHETAMINE SACCHARATE\DEXTROAMPHETAMINE SULFATE
     Indication: ATTENTION DEFICIT/HYPERACTIVITY DISORDER
     Dosage: ?          QUANTITY:1 TABLET(S);?
     Route: 048

REACTIONS (3)
  - Dry mouth [None]
  - Panic reaction [None]
  - Product substitution issue [None]

NARRATIVE: CASE EVENT DATE: 20180813
